FAERS Safety Report 7645062-3 (Version None)
Quarter: 2011Q3

REPORT INFORMATION
  Report Type: 
  Country: None (occurrence: None)
  Receive Date: 20110729
  Receipt Date: 20110725
  Transmission Date: 20111222
  Serious: Yes (Hospitalization)
  Sender: FDA-Public Use
  Company Number: US-ABBOTT-10P-163-0693288-00

PATIENT
  Sex: Male
  Weight: 77.634 kg

DRUGS (9)
  1. MERCAPTOPURINE [Concomitant]
     Indication: CROHN'S DISEASE
  2. HUMIRA [Suspect]
  3. WELLBUTRIN [Concomitant]
     Indication: DEPRESSION
  4. PENTASA [Concomitant]
     Indication: CROHN'S DISEASE
  5. LORTAB [Concomitant]
     Indication: PAIN
     Dosage: 10/375 MG AS NEEDED
  6. HUMIRA [Suspect]
     Indication: CROHN'S DISEASE
     Dosage: 2 AS A STARTER PACK
     Dates: start: 20100601, end: 20100601
  7. PHENERGAN HCL [Concomitant]
     Indication: NAUSEA
  8. NEXIUM [Concomitant]
     Indication: GASTROOESOPHAGEAL REFLUX DISEASE
  9. MERCAPTOPURINE [Concomitant]
     Indication: CROHN'S DISEASE

REACTIONS (10)
  - DEVICE RELATED INFECTION [None]
  - NAUSEA [None]
  - VOMITING [None]
  - BLOOD PRESSURE INCREASED [None]
  - CROHN'S DISEASE [None]
  - FISTULA [None]
  - CONSTIPATION [None]
  - ABDOMINAL DISTENSION [None]
  - CLOSTRIDIAL INFECTION [None]
  - SCAR [None]
